FAERS Safety Report 6901416-1 (Version None)
Quarter: 2010Q3

REPORT INFORMATION
  Report Type: 
  Country: None (occurrence: None)
  Receive Date: 20100803
  Receipt Date: 20080307
  Transmission Date: 20110219
  Serious: No
  Sender: FDA-Public Use
  Company Number: US-PFIZER INC-2008010665

PATIENT
  Age: 71 Year
  Sex: Female

DRUGS (6)
  1. LYRICA [Suspect]
     Route: 048
     Dates: start: 20071218, end: 20071224
  2. SYNTHROID [Concomitant]
  3. DIGITEK [Concomitant]
  4. PROTONIX [Concomitant]
  5. PREMARIN [Concomitant]
     Dates: start: 20071210
  6. WARFARIN SODIUM [Concomitant]
     Dates: start: 20071218

REACTIONS (4)
  - BLOOD PRESSURE DECREASED [None]
  - DISORIENTATION [None]
  - DIZZINESS [None]
  - DYSPNOEA [None]
